FAERS Safety Report 7988496-X (Version None)
Quarter: 2011Q4

REPORT INFORMATION
  Report Type: 
  Country: None (occurrence: None)
  Receive Date: 20111216
  Receipt Date: 20111208
  Transmission Date: 20120403
  Serious: Yes (Hospitalization)
  Sender: FDA-Public Use
  Company Number: US-ASTRAZENECA-2010SE52583

PATIENT
  Sex: Female

DRUGS (4)
  1. PREVACID [Concomitant]
  2. PRILOSEC [Suspect]
     Route: 048
  3. ZANTAC [Concomitant]
  4. NEXIUM [Suspect]
     Route: 048

REACTIONS (7)
  - DRUG INEFFECTIVE [None]
  - REGURGITATION [None]
  - HERNIA [None]
  - ABDOMINAL DISCOMFORT [None]
  - GENERAL PHYSICAL HEALTH DETERIORATION [None]
  - DRUG DOSE OMISSION [None]
  - OESOPHAGEAL DISORDER [None]
